FAERS Safety Report 6106171-3 (Version None)
Quarter: 2009Q1

REPORT INFORMATION
  Report Type: 
  Country: None (occurrence: None)
  Receive Date: 20090306
  Receipt Date: 20090223
  Transmission Date: 20090719
  Serious: Yes (Hospitalization, Other)
  Sender: FDA-Public Use
  Company Number: CH-ELI_LILLY_AND_COMPANY-CH200806001495

PATIENT
  Age: 37 Year
  Sex: Female
  Weight: 63 kg

DRUGS (5)
  1. CYMBALTA [Suspect]
     Indication: DEPRESSION
     Dosage: UNK, EACH MORNING
     Dates: start: 20071101
  2. CYMBALTA [Suspect]
     Dosage: 60 MG, DAILY (1/D)
     Route: 048
     Dates: start: 20080312
  3. FOLVITE [Concomitant]
     Indication: PREGNANCY
     Dosage: 1 MG, DAILY (1/D)
     Route: 048
     Dates: start: 20080601
  4. MAGNESIUM SULFATE [Concomitant]
     Indication: PREGNANCY
     Dosage: UNK, UNKNOWN
     Route: 048
     Dates: start: 20080601
  5. ELEVIT [Concomitant]
     Indication: PREGNANCY
     Dosage: 1 D/F, DAILY (1/D)
     Route: 048
     Dates: start: 20080601

REACTIONS (9)
  - ANOGENITAL WARTS [None]
  - BLOOD PRESSURE INCREASED [None]
  - DRUG EXPOSURE DURING PREGNANCY [None]
  - DRUG EXPOSURE VIA BREAST MILK [None]
  - GENITAL HERPES [None]
  - HELLP SYNDROME [None]
  - HYPERREFLEXIA [None]
  - NASOPHARYNGITIS [None]
  - PROTEINURIA [None]
